FAERS Safety Report 24302411 (Version 1)
Quarter: 2024Q3

REPORT INFORMATION
  Report Type: Spontaneous
  Country: DE (occurrence: None)
  Receive Date: 20240910
  Receipt Date: 20240910
  Transmission Date: 20241016
  Serious: Yes (Death)
  Sender: ASTRAZENECA
  Company Number: 2024A199934

PATIENT
  Age: 28 Year
  Sex: Female

DRUGS (1)
  1. SYMBICORT [Suspect]
     Active Substance: BUDESONIDE\FORMOTEROL FUMARATE DIHYDRATE
     Dosage: 320 UG EVERY OTHER DAY
     Route: 055
     Dates: start: 20240801, end: 20240801

REACTIONS (2)
  - Cough [Fatal]
  - Dyspnoea [Fatal]

NARRATIVE: CASE EVENT DATE: 20240801
